FAERS Safety Report 10314162 (Version 1)
Quarter: 2014Q3

REPORT INFORMATION
  Report Type: Spontaneous
  Country: DE (occurrence: DE)
  Receive Date: 20140718
  Receipt Date: 20140718
  Transmission Date: 20150326
  Serious: Yes (Other)
  Sender: FDA-Public Use
  Company Number: DE-ABBVIE-14P-062-1258425-00

PATIENT
  Age: 30 Year
  Sex: Female
  Weight: 51 kg

DRUGS (7)
  1. INFLIXIMAB [Suspect]
     Active Substance: INFLIXIMAB
     Indication: CROHN^S DISEASE
     Dosage: 2 INFUSIONS DURING PREGNANCY
     Route: 041
  2. PALLADON [Suspect]
     Active Substance: HYDROMORPHONE
     Indication: PAIN
     Route: 048
  3. PETHIDINE [Suspect]
     Active Substance: MEPERIDINE
     Indication: PAIN
     Route: 065
  4. HUMIRA [Suspect]
     Active Substance: ADALIMUMAB
     Indication: CROHN^S DISEASE
     Route: 058
  5. VENLAFAXINE [Suspect]
     Active Substance: VENLAFAXINE HYDROCHLORIDE
     Indication: DEPRESSION
     Route: 048
  6. METHOTREXATE [Suspect]
     Active Substance: METHOTREXATE
     Indication: CROHN^S DISEASE
     Route: 048
  7. CELESTAN [Suspect]
     Active Substance: BETAMETHASONE
     Indication: MATERNAL THERAPY TO ENHANCE FOETAL LUNG MATURITY
     Route: 030
     Dates: start: 20130114, end: 20130115

REACTIONS (3)
  - Premature labour [Unknown]
  - Placental insufficiency [Unknown]
  - Pre-eclampsia [Recovered/Resolved]
